FAERS Safety Report 24165811 (Version 3)
Quarter: 2024Q3

REPORT INFORMATION
  Report Type: Report from Study
  Country: US (occurrence: US)
  Receive Date: 20240802
  Receipt Date: 20240906
  Transmission Date: 20241016
  Serious: No
  Sender: ALEXION PHARMACEUTICALS
  Company Number: US-AstraZeneca-CH-00673273A

PATIENT
  Sex: Female
  Weight: 45.351 kg

DRUGS (2)
  1. ULTOMIRIS [Suspect]
     Active Substance: RAVULIZUMAB-CWVZ
     Indication: Myasthenia gravis
     Dosage: 3000 MILLIGRAM
     Route: 042
     Dates: start: 20220525, end: 20230822
  2. VYVGART [Suspect]
     Active Substance: EFGARTIGIMOD ALFA-FCAB
     Indication: Myasthenia gravis
     Dosage: 450 MILLIGRAM
     Route: 042
     Dates: start: 20231009, end: 20240219

REACTIONS (3)
  - Therapy non-responder [Recovered/Resolved]
  - Eyelid ptosis [Recovered/Resolved]
  - Asthenia [Recovered/Resolved]
